FAERS Safety Report 8888658 (Version 1)
Quarter: 2012Q4

REPORT INFORMATION
  Report Type: 
  Country: US (occurrence: US)
  Receive Date: 20121106
  Receipt Date: 20121106
  Transmission Date: 20130627
  Serious: Yes (Hospitalization)
  Sender: FDA-Public Use
  Company Number: US-GLAXOSMITHKLINE-A0883632A

PATIENT
  Age: 51 Year
  Sex: Female
  Weight: 117.7 kg

DRUGS (5)
  1. AVANDIA [Suspect]
     Indication: TYPE 2 DIABETES MELLITUS
     Route: 065
     Dates: start: 20030405, end: 20030525
  2. ASPIRIN [Concomitant]
     Dosage: 81MG Per day
  3. ESTRADIOL [Concomitant]
     Dosage: .5MG per day
  4. TYLENOL [Concomitant]
     Dosage: 300MG per day
  5. CENTRUM VITAMINS [Concomitant]
     Dosage: 1TAB per day

REACTIONS (9)
  - Cerebrovascular accident [Recovered/Resolved]
  - Blood glucose decreased [Unknown]
  - Dizziness [Unknown]
  - Hyperhidrosis [Unknown]
  - Fatigue [Unknown]
  - Influenza like illness [Unknown]
  - Decreased appetite [Unknown]
  - Fatigue [Unknown]
  - Drug hypersensitivity [Unknown]
